FAERS Safety Report 20899775 (Version 1)
Quarter: 2022Q2

REPORT INFORMATION
  Report Type: Spontaneous
  Country: US (occurrence: None)
  Receive Date: 20220531
  Receipt Date: 20220531
  Transmission Date: 20220720
  Serious: Yes (Hospitalization)
  Sender: FDA-Public Use
  Company Number: None

PATIENT
  Age: 46 Year
  Sex: Male
  Weight: 86.2 kg

DRUGS (3)
  1. BELIMUMAB [Suspect]
     Active Substance: BELIMUMAB
     Indication: Systemic lupus erythematosus
     Dosage: FREQUENCY : WEEKLY;?
     Route: 058
  2. Hydroxychloroquine 200 mg twice daily [Concomitant]
  3. Prednisone 10 mg once daily [Concomitant]

REACTIONS (10)
  - Pyrexia [None]
  - Swelling [None]
  - Dysuria [None]
  - Testicular pain [None]
  - Fournier^s gangrene [None]
  - Culture wound positive [None]
  - Clostridium test positive [None]
  - Actinomyces test positive [None]
  - Streptococcus test positive [None]
  - Blood culture positive [None]

NARRATIVE: CASE EVENT DATE: 20220119
